FAERS Safety Report 8969220 (Version 1)
Quarter: 2012Q4

REPORT INFORMATION
  Report Type: 
  Country: US (occurrence: US)
  Receive Date: 20121218
  Receipt Date: 20121218
  Transmission Date: 20130627
  Serious: Yes (Other)
  Sender: FDA-Public Use
  Company Number: US-BRISTOL-MYERS SQUIBB COMPANY-16317547

PATIENT

DRUGS (1)
  1. ABILIFY [Suspect]

REACTIONS (1)
  - Tardive dyskinesia [Unknown]
